FAERS Safety Report 23026974 (Version 1)
Quarter: 2023Q4

REPORT INFORMATION
  Report Type: Spontaneous
  Country: US (occurrence: None)
  Receive Date: 20231003
  Receipt Date: 20231003
  Transmission Date: 20240110
  Serious: Yes (Disabling, Other)
  Sender: FDA-Public Use
  Company Number: None

PATIENT
  Age: 21 Year
  Sex: Female

DRUGS (4)
  1. ARIPIPRAZOLE [Suspect]
     Active Substance: ARIPIPRAZOLE
     Indication: Major depression
     Dosage: FREQUENCY : AT BEDTIME;?
     Route: 048
     Dates: start: 20230921, end: 20230928
  2. Bupropion XL 450 mg daily (300 + 150 mg) [Concomitant]
     Dates: start: 20211201
  3. Atomoxetine 80 mg daily [Concomitant]
     Dates: start: 20180101
  4. UNSPECIFIED INGREDIENT [Concomitant]
     Active Substance: UNSPECIFIED INGREDIENT

REACTIONS (6)
  - Paranoia [None]
  - Hallucination, visual [None]
  - Emotional disorder [None]
  - Dissociation [None]
  - Metamorphopsia [None]
  - Insomnia [None]

NARRATIVE: CASE EVENT DATE: 20230921
